FAERS Safety Report 16447033 (Version 1)
Quarter: 2019Q2

REPORT INFORMATION
  Report Type: Spontaneous
  Country: US (occurrence: US)
  Receive Date: 20190618
  Receipt Date: 20190618
  Transmission Date: 20190711
  Serious: Yes (Hospitalization, Other)
  Sender: FDA-Public Use
  Company Number: US-SHIRE-US201918775

PATIENT

DRUGS (2)
  1. VITAMIN K [Concomitant]
     Active Substance: PHYTONADIONE
     Indication: ANTICOAGULANT THERAPY
  2. FEIBA NF [Suspect]
     Active Substance: ANTI-INHIBITOR COAGULANT COMPLEX
     Indication: ANTICOAGULANT THERAPY
     Dosage: UNK
     Route: 065

REACTIONS (4)
  - Deep vein thrombosis [Unknown]
  - Administration site thrombosis [Unknown]
  - Cyanosis [Unknown]
  - Off label use [Unknown]
